FAERS Safety Report 9789992 (Version 1)
Quarter: 2013Q4

REPORT INFORMATION
  Report Type: Spontaneous
  Country: US (occurrence: US)
  Receive Date: 20131231
  Receipt Date: 20131231
  Transmission Date: 20140711
  Serious: No
  Sender: FDA-Public Use
  Company Number: US-009507513-1312USA012546

PATIENT
  Age: 57 Year
  Sex: Female

DRUGS (4)
  1. COSOPT PF [Suspect]
     Indication: GLAUCOMA
     Dosage: 1 DROP IN EACH EYE DAILY
     Route: 047
     Dates: start: 2013
  2. TRAVATAN [Concomitant]
  3. COZAAR [Concomitant]
  4. PHENOBARBITAL [Concomitant]
     Dosage: UNK

REACTIONS (1)
  - Lacrimation increased [Recovered/Resolved]
